FAERS Safety Report 8883951 (Version 1)
Quarter: 2012Q4

REPORT INFORMATION
  Report Type: 
  Country: US (occurrence: US)
  Receive Date: 20121102
  Receipt Date: 20121102
  Transmission Date: 20130627
  Serious: No
  Sender: FDA-Public Use
  Company Number: US-ASTRAZENECA-2012SE25102

PATIENT
  Age: 60 Year
  Sex: Female

DRUGS (2)
  1. CRESTOR [Suspect]
     Route: 048
  2. SIMVASTATIN [Concomitant]

REACTIONS (3)
  - Blood cholesterol increased [Unknown]
  - Blood triglycerides increased [Unknown]
  - Intentional drug misuse [Unknown]
